FAERS Safety Report 4878844-1 (Version None)
Quarter: 2006Q1

REPORT INFORMATION
  Report Type: 
  Country: None (occurrence: None)
  Receive Date: 20060112
  Receipt Date: 20060103
  Transmission Date: 20060701
  Serious: Yes (Disabling)
  Sender: FDA-Public Use
  Company Number: FR-GLAXOSMITHKLINE-B0405449A

PATIENT
  Age: 37 Year
  Sex: Male
  Weight: 65 kg

DRUGS (3)
  1. COMBIVIR [Suspect]
     Indication: HIV INFECTION
     Dosage: 1TAB TWICE PER DAY
     Route: 048
     Dates: start: 20050304
  2. INVIRASE [Suspect]
     Indication: HIV INFECTION
     Dosage: 5UNIT TWICE PER DAY
     Route: 048
     Dates: start: 20050304
  3. KALETRA [Suspect]
     Indication: HIV INFECTION
     Dosage: 3UNIT TWICE PER DAY
     Route: 048
     Dates: start: 20050304

REACTIONS (2)
  - HYPERTRIGLYCERIDAEMIA [None]
  - OSTEONECROSIS [None]
